FAERS Safety Report 6761109-0 (Version None)
Quarter: 2010Q2

REPORT INFORMATION
  Report Type: 
  Country: None (occurrence: None)
  Receive Date: 20100608
  Receipt Date: 20100531
  Transmission Date: 20101027
  Serious: Yes (Other)
  Sender: FDA-Public Use
  Company Number: BR-SANOFI-AVENTIS-2010SA031597

PATIENT
  Age: 50 Year
  Sex: Female
  Weight: 70 kg

DRUGS (19)
  1. LANTUS [Suspect]
     Dosage: DOSE:38 UNIT(S)
     Route: 058
  2. OPTIPEN [Suspect]
     Dates: end: 20100528
  3. CAPTOPRIL [Concomitant]
     Indication: BLOOD PRESSURE
     Dosage: 2 TAB
  4. MONOCORDIL [Concomitant]
     Indication: BLOOD PRESSURE
     Dosage: 1 TAB
  5. ALDACTONE [Concomitant]
     Indication: BLOOD PRESSURE
     Dosage: 1 TAB
     Route: 048
  6. MYCOPHENOLATE SODIUM [Concomitant]
     Indication: RENAL DISORDER
     Dosage: 2 TAB
     Route: 048
  7. PREDNISONE [Concomitant]
     Indication: RENAL DISORDER
     Dosage: 1 TAB
     Route: 048
  8. CARVEDILOL [Concomitant]
     Route: 048
  9. DIGOXIN [Concomitant]
     Route: 048
  10. WARFARIN [Concomitant]
     Dosage: 0.5 TAB A DAY PLUS 1 TAB
  11. ATORVASTATIN [Concomitant]
     Dosage: 1 TAB
     Route: 048
  12. GEMFIBROZIL [Concomitant]
     Dosage: 1 TAB
     Route: 048
  13. CILOSTAZOL [Concomitant]
     Dosage: 2 TAB
     Route: 048
  14. FUROSEMIDE [Concomitant]
     Dosage: 2 TAB
  15. RANITIDINE [Concomitant]
     Indication: GASTRIC DISORDER
     Dosage: 2 TAB
     Route: 048
  16. CALCIUM CARBONATE [Concomitant]
     Dosage: 2 TAB
     Route: 048
  17. CALCITRIOL [Concomitant]
     Indication: OSTEOPOROSIS PROPHYLAXIS
     Dosage: 1 TAB
     Route: 048
  18. EPOGEN [Concomitant]
     Route: 058
  19. HUMALOG [Concomitant]
     Route: 058

REACTIONS (1)
  - LOCALISED INFECTION [None]
